FAERS Safety Report 5165671-3 (Version None)
Quarter: 2006Q4

REPORT INFORMATION
  Report Type: 
  Country: None (occurrence: None)
  Receive Date: 20061128
  Receipt Date: 20061113
  Transmission Date: 20070319
  Serious: Yes (Hospitalization)
  Sender: FDA-Public Use
  Company Number: S06-FRA-04937-01

PATIENT
  Age: 92 Year
  Sex: Male

DRUGS (7)
  1. SEROPAM [Suspect]
     Dosage: 10 MG QD PO
     Route: 048
     Dates: end: 20060824
  2. PREVISCAN (FLUINDIONE) [Suspect]
     Dosage: 20 MG QD PO
     Route: 048
     Dates: end: 20060824
  3. TAVANIC            (LEVOFLOXACIN) [Suspect]
     Indication: PNEUMONIA
     Dosage: 500 MG QD PO
     Route: 048
     Dates: end: 20060824
  4. RYTHMOL [Concomitant]
  5. XATRAL              (ALFUZOSIN) [Concomitant]
  6. OMEPRAZOLE [Concomitant]
  7. NITRIDERM                (GLYCERYL TRINITRATE) [Concomitant]

REACTIONS (3)
  - ILIUM FRACTURE [None]
  - INTERNATIONAL NORMALISED RATIO INCREASED [None]
  - PNEUMONIA [None]
